FAERS Safety Report 6420204-6 (Version None)
Quarter: 2009Q4

REPORT INFORMATION
  Report Type: 
  Country: None (occurrence: None)
  Receive Date: 20091029
  Receipt Date: 20091014
  Transmission Date: 20100525
  Serious: Yes (Other)
  Sender: FDA-Public Use
  Company Number: PHHY2009GB46141

PATIENT

DRUGS (1)
  1. TEGRETOL RETARD [Suspect]
     Dosage: BID, MORNING DOSE AND SECOND DOSE 5 HOURS LATER

REACTIONS (1)
  - BREAST OPERATION [None]
